FAERS Safety Report 8779552 (Version 1)
Quarter: 2012Q4

REPORT INFORMATION
  Report Type: 
  Country: AU (occurrence: AU)
  Receive Date: 20120912
  Receipt Date: 20120912
  Transmission Date: 20130627
  Serious: Yes (Other)
  Sender: FDA-Public Use
  Company Number: AU-JNJFOC-20120902997

PATIENT
  Sex: Female
  Weight: 60 kg

DRUGS (2)
  1. ITRACONAZOLE [Suspect]
     Indication: PRODUCT USED FOR UNKNOWN INDICATION
     Route: 065
     Dates: start: 20101219, end: 20110214
  2. ITRACONAZOLE [Suspect]
     Indication: PRODUCT USED FOR UNKNOWN INDICATION
     Dosage: with reduced dose
     Route: 065

REACTIONS (4)
  - Toxicity to various agents [Recovered/Resolved]
  - Nephrotic syndrome [Recovered/Resolved]
  - Proteinuria [Recovered/Resolved]
  - Hypokalaemia [Recovered/Resolved]
